FAERS Safety Report 5966560-4 (Version None)
Quarter: 2008Q4

REPORT INFORMATION
  Report Type: 
  Country: None (occurrence: None)
  Receive Date: 20081119
  Receipt Date: 20080718
  Transmission Date: 20090506
  Serious: No
  Sender: FDA-Public Use
  Company Number: WAES 0807USA03838

PATIENT
  Age: 81 Year
  Sex: Male

DRUGS (6)
  1. JANUVIA [Suspect]
     Indication: BLOOD GLUCOSE
     Dosage: 100 MG/DAILY/PO
     Route: 048
     Dates: start: 20080714
  2. COREG [Concomitant]
  3. FLOMAX [Concomitant]
  4. LASIX [Concomitant]
  5. LIPITOR [Concomitant]
  6. NASONEX [Concomitant]

REACTIONS (1)
  - DRUG INEFFECTIVE [None]
